FAERS Safety Report 7730060-1 (Version None)
Quarter: 2011Q3

REPORT INFORMATION
  Report Type: 
  Country: None (occurrence: None)
  Receive Date: 20110906
  Receipt Date: 20110829
  Transmission Date: 20111222
  Serious: Yes (Other)
  Sender: FDA-Public Use
  Company Number: PHHY2010US53853

PATIENT
  Sex: Female

DRUGS (6)
  1. TRAMADOL HYDROCHLORIDE [Concomitant]
     Dosage: UNK UKN, UNK
  2. EXTAVIA [Suspect]
     Indication: MULTIPLE SCLEROSIS
     Dosage: 0.25 MG (1 ML), QOD
     Route: 058
     Dates: start: 20100623
  3. WELLBUTRIN [Concomitant]
     Dosage: UNK UKN, UNK
  4. BACLOFEN [Concomitant]
     Dosage: UNK UKN, UNK
  5. ZOLOFT [Concomitant]
     Dosage: UNK UKN, UNK
  6. ESTRADIOL [Concomitant]
     Dosage: UNK UKN, UNK

REACTIONS (23)
  - FEELING ABNORMAL [None]
  - INJECTION SITE ERYTHEMA [None]
  - BONE LOSS [None]
  - GINGIVITIS [None]
  - INCONTINENCE [None]
  - FATIGUE [None]
  - SOMNOLENCE [None]
  - LIMB DISCOMFORT [None]
  - DYSPHONIA [None]
  - MIGRAINE [None]
  - NAUSEA [None]
  - INJECTION SITE HAEMORRHAGE [None]
  - INJECTION SITE HAEMATOMA [None]
  - INJECTION SITE REACTION [None]
  - HYPOAESTHESIA [None]
  - HYPERHIDROSIS [None]
  - PAIN IN EXTREMITY [None]
  - MUSCLE SPASMS [None]
  - DENTAL CARIES [None]
  - MUSCLE TIGHTNESS [None]
  - PARAESTHESIA [None]
  - FEELING HOT [None]
  - SOMNAMBULISM [None]
